FAERS Safety Report 5844682-6 (Version None)
Quarter: 2008Q3

REPORT INFORMATION
  Report Type: 
  Country: None (occurrence: None)
  Receive Date: 20080812
  Receipt Date: 20070619
  Transmission Date: 20090109
  Serious: Yes (Hospitalization, Other)
  Sender: FDA-Public Use
  Company Number: 2007-00624FE

PATIENT
  Age: 36 Year
  Sex: Male

DRUGS (17)
  1. SOMATROPIN (UNKNOWN) () (SOMATROPIN) [Suspect]
     Dosage: 4 IU/8 IU SC
     Route: 058
  2. ANASTROZOLE [Concomitant]
  3. BOLDENONE DNDECYLENATE [Concomitant]
  4. CLENBUTEROL HYDROCHLORIDE [Concomitant]
  5. NANDROLONE DECANOATE [Concomitant]
  6. FLUOXYMESTERONE [Concomitant]
  7. GONADOTROPIN CHORIONIC [Concomitant]
  8. INSULIN [Concomitant]
  9. LIOTHYRONINE SODIUM [Concomitant]
  10. MESTEROLONE [Concomitant]
  11. METHANDROSTENOLONE [Concomitant]
  12. OXYMETHOLONE [Concomitant]
  13. SPIRONOLACTONE [Concomitant]
  14. STANOZOLOL [Concomitant]
  15. TESTOSTERONE ENANTHATE [Concomitant]
  16. TESTOSTERONE PROPIONATE [Concomitant]
  17. TREBELONE ACETATE [Concomitant]

REACTIONS (10)
  - ABDOMINAL PAIN UPPER [None]
  - BLOOD CREATININE INCREASED [None]
  - DEHYDRATION [None]
  - DIABETES MELLITUS [None]
  - HEPATITIS ACUTE [None]
  - HEPATOMEGALY [None]
  - INTENTIONAL DRUG MISUSE [None]
  - KIDNEY ENLARGEMENT [None]
  - LIVER FUNCTION TEST ABNORMAL [None]
  - WEIGHT DECREASED [None]
